FAERS Safety Report 25860608 (Version 1)
Quarter: 2025Q3

REPORT INFORMATION
  Report Type: Spontaneous
  Country: US (occurrence: US)
  Receive Date: 20250929
  Receipt Date: 20250929
  Transmission Date: 20251020
  Serious: Yes (Death)
  Sender: LUNDBECK
  Company Number: US-LUNDBECK-DKLU4019879

PATIENT
  Age: 81 Year
  Sex: Male

DRUGS (4)
  1. NORTHERA [Suspect]
     Active Substance: DROXIDOPA
     Indication: Syncope
     Dosage: 600 MILLIGRAM
     Route: 048
     Dates: start: 20191118
  2. FISH OIL [Concomitant]
     Active Substance: FISH OIL
     Indication: Product used for unknown indication
  3. LIPITOR [Concomitant]
     Active Substance: ATORVASTATIN CALCIUM
     Indication: Product used for unknown indication
  4. VITAMINS [Concomitant]
     Active Substance: VITAMINS
     Indication: Product used for unknown indication

REACTIONS (1)
  - Death [Fatal]
